FAERS Safety Report 6139872-1 (Version None)
Quarter: 2009Q1

REPORT INFORMATION
  Report Type: 
  Country: None (occurrence: None)
  Receive Date: 20090331
  Receipt Date: 20090331
  Transmission Date: 20090719
  Serious: Yes (Hospitalization, Disabling, Other)
  Sender: FDA-Public Use
  Company Number: None

PATIENT
  Sex: Female
  Weight: 80.91 kg

DRUGS (20)
  1. ZENAPAX [Suspect]
     Dosage: 5MG/ML VIAL 70 MG X1
     Route: 042
     Dates: start: 20090327, end: 20090327
  2. BECONASE (BECLOMETHASONE DIPROPIONATE NASAL) [Concomitant]
  3. CONCERTA (METHYLPHENIDATE EXTENDED RELEASE) [Concomitant]
  4. DOXAZOSIN MESYLATE [Concomitant]
  5. HYDROCORTISONE 2.5% [Concomitant]
  6. HYDROXYZINE HCL [Concomitant]
  7. LORAZEPAM [Concomitant]
  8. MIRAPEX [Concomitant]
  9. MOTRIN [Concomitant]
  10. NEXIUM [Concomitant]
  11. NORVASC [Concomitant]
  12. OSCAL + D (CALCIUM CARBONATE / VIT D) [Concomitant]
  13. OXYCODONE HCL [Concomitant]
  14. PREDNISONE [Concomitant]
  15. PROVIGIL [Concomitant]
  16. PSORCON E (DIFLORASONE DIACETATE) [Concomitant]
  17. TYLENOL #3 (ACETAMINIOPHEN W/ CODEINE) [Concomitant]
  18. WELLBUTRIN XL (BUPROPION HCL EXTENDED RELEASE) [Concomitant]
  19. ZANTAC (RANTIDINE HCL) [Concomitant]
  20. ZESTRIL [Concomitant]

REACTIONS (3)
  - DYSPNOEA [None]
  - INFLUENZA LIKE ILLNESS [None]
  - LUNG DISORDER [None]
